FAERS Safety Report 7949717-2 (Version None)
Quarter: 2011Q4

REPORT INFORMATION
  Report Type: 
  Country: None (occurrence: None)
  Receive Date: 20111130
  Receipt Date: 20111116
  Transmission Date: 20120403
  Serious: Yes (Other)
  Sender: FDA-Public Use
  Company Number: PHHY2011TW103849

PATIENT
  Age: 36 Year
  Sex: Male

DRUGS (4)
  1. ANTIBIOTICS [Concomitant]
  2. STEROIDS NOS [Concomitant]
  3. MYCOPHENOLIC ACID [Suspect]
  4. CYCLOSPORINE [Suspect]

REACTIONS (7)
  - BLOOD CREATININE INCREASED [None]
  - NEPHROPATHY TOXIC [None]
  - KIDNEY TRANSPLANT REJECTION [None]
  - NEUROTOXICITY [None]
  - DYSPNOEA [None]
  - BLOOD UREA INCREASED [None]
  - ALTERED STATE OF CONSCIOUSNESS [None]
